FAERS Safety Report 5145384-4 (Version None)
Quarter: 2006Q4

REPORT INFORMATION
  Report Type: 
  Country: None (occurrence: None)
  Receive Date: 20061101
  Receipt Date: 20061016
  Transmission Date: 20070319
  Serious: Yes (Other)
  Sender: FDA-Public Use
  Company Number: FR200610002931

PATIENT
  Age: 78 Year
  Sex: Female

DRUGS (2)
  1. FORTEO [Suspect]
     Indication: OSTEOPOROSIS
     Dosage: 20 UG; DAILY (1/D), SUBCUTANEOUS
     Route: 058
     Dates: start: 20060322
  2. FORTEO PEN (250MCG/ML( (FORTEO PEN 250MCG/,L (3ML)) PEN,DISPOSABLE [Concomitant]

REACTIONS (3)
  - ARTHRALGIA [None]
  - PRURITUS [None]
  - WEIGHT DECREASED [None]
